FAERS Safety Report 19511445 (Version 1)
Quarter: 2021Q3

REPORT INFORMATION
  Report Type: Spontaneous
  Country: US (occurrence: US)
  Receive Date: 20210709
  Receipt Date: 20210709
  Transmission Date: 20211014
  Serious: No
  Sender: FDA-Public Use
  Company Number: None

PATIENT
  Age: 39 Year
  Sex: Male

DRUGS (1)
  1. OTEZLA [Suspect]
     Active Substance: APREMILAST
     Indication: PSORIASIS
     Route: 048
     Dates: end: 20210607

REACTIONS (5)
  - Mood altered [None]
  - Behaviour disorder [None]
  - Therapy non-responder [None]
  - Agitation [None]
  - Weight decreased [None]

NARRATIVE: CASE EVENT DATE: 20210428
